FAERS Safety Report 20611973 (Version 1)
Quarter: 2022Q1

REPORT INFORMATION
  Report Type: Spontaneous
  Country: FR (occurrence: FR)
  Receive Date: 20220318
  Receipt Date: 20220318
  Transmission Date: 20220423
  Serious: Yes (Hospitalization)
  Sender: FDA-Public Use
  Company Number: None

PATIENT
  Age: 19 Year
  Sex: Female
  Weight: 42.9 kg

DRUGS (2)
  1. TRAMADOL [Suspect]
     Active Substance: TRAMADOL
     Indication: Myalgia
     Dosage: UNSPECIFIED
     Route: 048
     Dates: start: 20220216, end: 20220221
  2. PENICILLIN V [Suspect]
     Active Substance: PENICILLIN V
     Indication: Rheumatic fever
     Dosage: 2 DOSAGE FORMS DAILY; 1 CP 2X/D,
     Route: 048
     Dates: start: 20220216

REACTIONS (1)
  - International normalised ratio increased [Recovering/Resolving]

NARRATIVE: CASE EVENT DATE: 20220221
